FAERS Safety Report 17460701 (Version 6)
Quarter: 2024Q1

REPORT INFORMATION
  Report Type: Spontaneous
  Country: JP (occurrence: JP)
  Receive Date: 20200226
  Receipt Date: 20240308
  Transmission Date: 20240410
  Serious: Yes (Life-Threatening, Hospitalization, Other)
  Sender: FDA-Public Use
  Company Number: JP-PFIZER INC-2020011534

PATIENT
  Age: 23 Year
  Sex: Male
  Weight: 93 kg

DRUGS (30)
  1. FOSPHENYTOIN SODIUM [Suspect]
     Active Substance: FOSPHENYTOIN SODIUM
     Indication: Seizure
     Dosage: 750 MG, 1X/DAY
     Route: 042
     Dates: start: 20191220, end: 20191223
  2. PHENOBARBITAL SODIUM [Suspect]
     Active Substance: PHENOBARBITAL SODIUM
     Indication: Seizure
     Dosage: 1500 MG, 1X/DAY
     Route: 042
     Dates: start: 20191225, end: 20200104
  3. PHENOBARBITAL SODIUM [Suspect]
     Active Substance: PHENOBARBITAL SODIUM
     Dosage: 1000 MG, 1X/DAY
     Route: 042
  4. PHENOBARBITAL SODIUM [Suspect]
     Active Substance: PHENOBARBITAL SODIUM
     Dosage: 1500 MG, 1X/DAY
     Route: 042
  5. PHENOBARBITAL SODIUM [Suspect]
     Active Substance: PHENOBARBITAL SODIUM
     Dosage: 1000 MG, 1X/DAY
     Route: 042
  6. PHENOBARBITAL SODIUM [Suspect]
     Active Substance: PHENOBARBITAL SODIUM
     Dosage: 500 MG, 1X/DAY
     Route: 042
  7. PHENOBARBITAL SODIUM [Suspect]
     Active Substance: PHENOBARBITAL SODIUM
     Dosage: 750 MG, 1X/DAY
     Route: 042
  8. PHENOBARBITAL SODIUM [Suspect]
     Active Substance: PHENOBARBITAL SODIUM
     Dosage: UNK
     Route: 048
  9. LEVETIRACETAM [Suspect]
     Active Substance: LEVETIRACETAM
     Indication: Seizure
     Dosage: UNK, 2X/DAY
     Route: 048
     Dates: start: 20191213, end: 20191229
  10. LEVETIRACETAM [Suspect]
     Active Substance: LEVETIRACETAM
     Dosage: UNK, 2X/DAY
     Route: 048
     Dates: start: 20191213, end: 20191229
  11. VIMPAT [Suspect]
     Active Substance: LACOSAMIDE
     Indication: Seizure
     Dosage: UNK, 2X/DAY
     Route: 048
     Dates: start: 20191221, end: 20200101
  12. MIDAZOLAM [Concomitant]
     Active Substance: MIDAZOLAM
     Indication: Seizure
     Dosage: UNK
     Route: 042
     Dates: start: 20191213, end: 20200120
  13. AMPICILLIN SODIUM\SULBACTAM SODIUM [Concomitant]
     Active Substance: AMPICILLIN SODIUM\SULBACTAM SODIUM
     Indication: Pneumonia
     Dosage: (3 GM,6 HR)
     Route: 042
     Dates: start: 20191216, end: 20191225
  14. CEFTAZIDIME [Concomitant]
     Active Substance: CEFTAZIDIME
     Indication: Pneumonia
     Dosage: (2 GM,8 HR)
     Route: 042
     Dates: start: 20200106, end: 20200116
  15. PIPERACILLIN SODIUM\TAZOBACTAM SODIUM [Concomitant]
     Active Substance: PIPERACILLIN SODIUM\TAZOBACTAM SODIUM
     Indication: Pneumonia
     Dosage: (4.5 GM,6 HR)
     Route: 042
     Dates: start: 20191225, end: 20200104
  16. FENTANYL [Concomitant]
     Active Substance: FENTANYL\FENTANYL CITRATE
     Indication: Analgesic therapy
     Dosage: UNK
     Route: 042
     Dates: start: 20191213, end: 20200118
  17. DIPRIVAN [Concomitant]
     Active Substance: ISOPROPYL ALCOHOL\PROPOFOL
     Indication: Seizure
     Dosage: UNK
     Route: 042
     Dates: start: 20191213, end: 20200114
  18. ACYCLOVIR [Concomitant]
     Active Substance: ACYCLOVIR
     Indication: Prophylaxis
     Dosage: 200 MG, 1X/DAY
     Route: 042
     Dates: start: 20191227, end: 20200103
  19. LACOSAMIDE [Concomitant]
     Active Substance: LACOSAMIDE
     Indication: Seizure
     Dosage: 200 MG, 1X/DAY
     Route: 042
  20. LACOSAMIDE [Concomitant]
     Active Substance: LACOSAMIDE
     Dosage: 300 MG, 1X/DAY
     Route: 042
  21. LACOSAMIDE [Concomitant]
     Active Substance: LACOSAMIDE
     Dosage: 400 MG, 1X/DAY
     Route: 042
  22. LACOSAMIDE [Concomitant]
     Active Substance: LACOSAMIDE
     Dosage: UNK
     Route: 048
  23. LEVETIRACETAM [Concomitant]
     Active Substance: LEVETIRACETAM
     Indication: Tonic convulsion
     Dosage: 1000 MG, 1X/DAY
     Route: 042
  24. LEVETIRACETAM [Concomitant]
     Active Substance: LEVETIRACETAM
     Dosage: 2000 MG, 1X/DAY
     Route: 042
  25. PROPOFOL [Concomitant]
     Active Substance: PROPOFOL
     Dosage: UNK
     Route: 042
  26. BLEOMYCIN SULFATE [Concomitant]
     Active Substance: BLEOMYCIN SULFATE
     Indication: Hodgkin^s disease
     Dosage: UNK
     Route: 065
  27. VINBLASTINE [Concomitant]
     Active Substance: VINBLASTINE
     Indication: Hodgkin^s disease
     Dosage: UNK
     Route: 065
  28. DACARBAZINE [Concomitant]
     Active Substance: DACARBAZINE
     Indication: Hodgkin^s disease
     Dosage: UNK
     Route: 065
  29. METHYLPREDNISOLONE [Concomitant]
     Active Substance: METHYLPREDNISOLONE
     Indication: Hodgkin^s disease
     Dosage: 1 G, 1X/DAY
     Route: 065
  30. METHYLPREDNISOLONE [Concomitant]
     Active Substance: METHYLPREDNISOLONE
     Indication: Encephalitis autoimmune

REACTIONS (5)
  - Drug reaction with eosinophilia and systemic symptoms [Recovering/Resolving]
  - Pyrexia [Recovering/Resolving]
  - Liver disorder [Recovering/Resolving]
  - Therapeutic product effect incomplete [Unknown]
  - Rash [Unknown]

NARRATIVE: CASE EVENT DATE: 20200103
